FAERS Safety Report 17951034 (Version 1)
Quarter: 2020Q2

REPORT INFORMATION
  Report Type: Spontaneous
  Country: GB (occurrence: GB)
  Receive Date: 20200626
  Receipt Date: 20200626
  Transmission Date: 20200714
  Serious: Yes (Hospitalization)
  Sender: FDA-Public Use
  Company Number: GB-TEVA-2020-GB-1791736

PATIENT
  Age: 91 Year
  Sex: Female
  Weight: 48 kg

DRUGS (13)
  1. BISOPROLOL FUMARATE. [Concomitant]
     Active Substance: BISOPROLOL FUMARATE
  2. CEFALEXIN [Concomitant]
     Active Substance: CEPHALEXIN
  3. CALCICHEW D3 [Concomitant]
     Active Substance: CALCIUM\CHOLECALCIFEROL
  4. AMITRIPTYLINE [Concomitant]
     Active Substance: AMITRIPTYLINE
  5. PARACETAMOL [Concomitant]
     Active Substance: ACETAMINOPHEN
  6. LANSOPRAZOLE. [Concomitant]
     Active Substance: LANSOPRAZOLE
  7. ATORVASTATIN [Concomitant]
     Active Substance: ATORVASTATIN
  8. FELODIPINE. [Concomitant]
     Active Substance: FELODIPINE
  9. ISOSORBIDE MONONITRATE. [Concomitant]
     Active Substance: ISOSORBIDE MONONITRATE
  10. RAMIPRIL. [Suspect]
     Active Substance: RAMIPRIL
     Indication: HYPERTENSION
     Dosage: 2.5 MG
     Route: 048
     Dates: start: 20200527, end: 20200528
  11. ENOXAPARIN [Concomitant]
     Active Substance: ENOXAPARIN
  12. BUMETANIDE. [Concomitant]
     Active Substance: BUMETANIDE
  13. ACETYLSALICYLIC ACID [Concomitant]
     Active Substance: ASPIRIN

REACTIONS (2)
  - Swollen tongue [Recovered/Resolved]
  - Dysphagia [Recovered/Resolved]

NARRATIVE: CASE EVENT DATE: 20200527
